FAERS Safety Report 12282243 (Version 2)
Quarter: 2016Q2

REPORT INFORMATION
  Report Type: Spontaneous
  Country: US (occurrence: US)
  Receive Date: 20160419
  Receipt Date: 20160429
  Transmission Date: 20160815
  Serious: No
  Sender: FDA-Public Use
  Company Number: US-OTSUKA-2016_007557

PATIENT
  Age: 62 Year
  Sex: Female

DRUGS (4)
  1. REXULTI [Suspect]
     Active Substance: BREXPIPRAZOLE
     Dosage: (POSSIBLY HALF OF REXULTI TABLET), UNK
     Route: 065
  2. REXULTI [Suspect]
     Active Substance: BREXPIPRAZOLE
     Indication: PRODUCT USED FOR UNKNOWN INDICATION
     Dosage: 1 MG, UNK
     Route: 065
     Dates: start: 20160315
  3. REXULTI [Suspect]
     Active Substance: BREXPIPRAZOLE
     Dosage: 1 MG, UNK
     Route: 065
  4. LEXAPRO [Concomitant]
     Active Substance: ESCITALOPRAM OXALATE
     Indication: PRODUCT USED FOR UNKNOWN INDICATION
     Dosage: UNK
     Route: 065

REACTIONS (10)
  - Illogical thinking [Unknown]
  - Gastrointestinal pain [Unknown]
  - General physical health deterioration [Unknown]
  - Nausea [Unknown]
  - Wrong technique in product usage process [Unknown]
  - Gastric disorder [Unknown]
  - Insomnia [Unknown]
  - Disturbance in attention [Unknown]
  - Disorientation [Unknown]
  - Mental impairment [Unknown]

NARRATIVE: CASE EVENT DATE: 201603
